FAERS Safety Report 7966267-8 (Version None)
Quarter: 2011Q4

REPORT INFORMATION
  Report Type: 
  Country: None (occurrence: None)
  Receive Date: 20111208
  Receipt Date: 20111202
  Transmission Date: 20120403
  Serious: Yes (Other)
  Sender: FDA-Public Use
  Company Number: PHHY2011NL94043

PATIENT
  Sex: Male

DRUGS (5)
  1. ZOMETA [Suspect]
     Dosage: 4 MG/5 ML 1X PER 28 DAYS
     Route: 042
     Dates: start: 20111025
  2. ZOMETA [Suspect]
     Dosage: 4 MG/5 ML 1X PER 28 DAYS
     Route: 042
     Dates: start: 20111121
  3. OXYGEN [Concomitant]
  4. ZOMETA [Suspect]
     Indication: HYPERCALCAEMIA
     Dosage: 4 MG/5 ML 1X PER 28 DAYS
     Route: 042
     Dates: start: 20110829
  5. MORPHINE [Concomitant]

REACTIONS (6)
  - GENERAL PHYSICAL HEALTH DETERIORATION [None]
  - TERMINAL STATE [None]
  - DYSPNOEA [None]
  - SPUTUM RETENTION [None]
  - NEOPLASM PROGRESSION [None]
  - NEOPLASM MALIGNANT [None]
